FAERS Safety Report 18002766 (Version 2)
Quarter: 2021Q3

REPORT INFORMATION
  Report Type: Spontaneous
  Country: US (occurrence: US)
  Receive Date: 20200709
  Receipt Date: 20210709
  Transmission Date: 20211014
  Serious: No
  Sender: FDA-Public Use
  Company Number: US-ASTELLAS-2019US030625

PATIENT
  Age: 88 Year
  Sex: Male

DRUGS (1)
  1. MYRBETRIQ [Suspect]
     Active Substance: MIRABEGRON
     Indication: PRODUCT USED FOR UNKNOWN INDICATION
     Dosage: 50 MG, ONCE DAILY (IN THE MORNING/EARLY AFTERNOON)
     Route: 065
     Dates: start: 20190721, end: 20190724

REACTIONS (10)
  - Chills [Unknown]
  - Joint effusion [Unknown]
  - Burning sensation [Unknown]
  - Arthralgia [Unknown]
  - Gait disturbance [Unknown]
  - Body temperature increased [Recovering/Resolving]
  - Nocturia [Unknown]
  - Product dose omission issue [Unknown]
  - Erythema [Unknown]
  - Joint swelling [Unknown]

NARRATIVE: CASE EVENT DATE: 201907
